FAERS Safety Report 9783611 (Version 1)
Quarter: 2013Q4

REPORT INFORMATION
  Report Type: Spontaneous
  Country: FR (occurrence: FR)
  Receive Date: 20131226
  Receipt Date: 20131226
  Transmission Date: 20140711
  Serious: Yes (Other)
  Sender: FDA-Public Use
  Company Number: FR-B.I. PHARMACEUTICALS,INC./RIDGEFIELD-2013-BI-43320FF

PATIENT
  Age: 80 Year
  Sex: Female

DRUGS (5)
  1. PRADAXA [Suspect]
     Indication: ATRIAL FIBRILLATION
     Dosage: 220 MG
     Route: 048
     Dates: start: 20130723, end: 20130830
  2. LEXOMIL (BROMAZEPAM) [Concomitant]
  3. PRAXILENE (NAFTIDROFURYL) [Concomitant]
     Dosage: 400 MG
  4. TEMERIT (NEBIVOLOL) [Concomitant]
     Dosage: 5 MG
  5. DOLIPRANE (PARACETAMOL) [Concomitant]

REACTIONS (2)
  - Haemoptysis [Recovered/Resolved]
  - Condition aggravated [Recovered/Resolved]
